FAERS Safety Report 9031061 (Version 4)
Quarter: 2013Q2

REPORT INFORMATION
  Report Type: Spontaneous
  Country: US (occurrence: US)
  Receive Date: 20130123
  Receipt Date: 20130411
  Transmission Date: 20140414
  Serious: No
  Sender: FDA-Public Use
  Company Number: US-PFIZER INC-2013024520

PATIENT
  Age: 60 Year
  Sex: Female
  Weight: 79.37 kg

DRUGS (4)
  1. CELEBREX [Suspect]
     Indication: ARTHRITIS
     Dosage: 200 MG, 1X/DAY
     Route: 048
  2. ESTRACE [Concomitant]
     Indication: SKIN DISORDER
     Dosage: 1X/DAY
  3. CLOBETASOL [Concomitant]
     Indication: SKIN DISORDER
     Dosage: ALTERNATE DAY
  4. CLARITIN [Concomitant]
     Indication: HYPERSENSITIVITY
     Dosage: 10MG, DAILY

REACTIONS (3)
  - Malaise [Unknown]
  - Asthma [Unknown]
  - Product quality issue [Unknown]
